FAERS Safety Report 5535083-9 (Version None)
Quarter: 2007Q4

REPORT INFORMATION
  Report Type: 
  Country: None (occurrence: None)
  Receive Date: 20071203
  Receipt Date: 20071116
  Transmission Date: 20080405
  Serious: Yes (Life-Threatening)
  Sender: FDA-Public Use
  Company Number: 2007EU002560

PATIENT
  Sex: Female

DRUGS (1)
  1. PROGRAF [Suspect]
     Indication: PANCREAS ISLET CELL TRANSPLANT
     Dosage: /D, ORAL
     Route: 048
     Dates: start: 20060901

REACTIONS (1)
  - SUBARACHNOID HAEMORRHAGE [None]
